FAERS Safety Report 18061782 (Version 1)
Quarter: 2020Q3

REPORT INFORMATION
  Report Type: Spontaneous
  Country: US (occurrence: US)
  Receive Date: 20200723
  Receipt Date: 20200723
  Transmission Date: 20201103
  Serious: Yes (Life-Threatening, Hospitalization)
  Sender: FDA-Public Use
  Company Number: US-MYLANLABS-2020M1066620

PATIENT
  Age: 25 Year
  Sex: Female

DRUGS (4)
  1. BUSPIRONE [Suspect]
     Active Substance: BUSPIRONE HYDROCHLORIDE
     Indication: DEPRESSION
     Route: 048
  2. ZOLPIDEM [Suspect]
     Active Substance: ZOLPIDEM TARTRATE
     Indication: PRODUCT USED FOR UNKNOWN INDICATION
     Route: 048
  3. OXYCODONE [Suspect]
     Active Substance: OXYCODONE
     Indication: PRODUCT USED FOR UNKNOWN INDICATION
     Route: 048
  4. LAMOTRIGINE. [Suspect]
     Active Substance: LAMOTRIGINE
     Indication: DEPRESSION
     Route: 048

REACTIONS (15)
  - Encephalopathy [Recovering/Resolving]
  - Pulmonary oedema [Recovering/Resolving]
  - Overdose [Recovering/Resolving]
  - Stress cardiomyopathy [Recovering/Resolving]
  - Disseminated intravascular coagulation [Recovering/Resolving]
  - Multiple organ dysfunction syndrome [Recovering/Resolving]
  - Acute kidney injury [Recovering/Resolving]
  - Metabolic acidosis [Recovering/Resolving]
  - Drug abuse [Recovering/Resolving]
  - Distributive shock [Recovering/Resolving]
  - Serotonin syndrome [Recovering/Resolving]
  - Transaminases increased [Recovering/Resolving]
  - Acute hepatic failure [Recovering/Resolving]
  - Rhabdomyolysis [Recovering/Resolving]
  - Acute respiratory failure [Recovering/Resolving]
